FAERS Safety Report 6979617-6 (Version None)
Quarter: 2010Q3

REPORT INFORMATION
  Report Type: 
  Country: None (occurrence: None)
  Receive Date: 20100910
  Receipt Date: 20100910
  Transmission Date: 20110219
  Serious: Yes (Life-Threatening)
  Sender: FDA-Public Use
  Company Number: None

PATIENT
  Age: 74 Year
  Sex: Male
  Weight: 66.22 kg

DRUGS (10)
  1. WARFARIN SODIUM [Suspect]
     Indication: ATRIAL FIBRILLATION
     Dosage: 5 MG DAILY PO
     Route: 048
     Dates: start: 20090401, end: 20091210
  2. LASIX [Concomitant]
  3. METFORMIN [Concomitant]
  4. ENALAPRIL [Concomitant]
  5. CRESTOR [Concomitant]
  6. NEXIUM [Concomitant]
  7. CARVEDILOL [Concomitant]
  8. TYLENOL W/ CODEINE NO. 3 [Concomitant]
  9. REGLAN [Concomitant]
  10. AMBIEN [Concomitant]

REACTIONS (4)
  - CONVULSION [None]
  - FALL [None]
  - HAEMATOMA [None]
  - INTERNATIONAL NORMALISED RATIO INCREASED [None]
